FAERS Safety Report 22128801 (Version 1)
Quarter: 2023Q1

REPORT INFORMATION
  Report Type: Spontaneous
  Country: US (occurrence: US)
  Receive Date: 20230323
  Receipt Date: 20230323
  Transmission Date: 20230418
  Serious: Yes (Other)
  Sender: FDA-Public Use
  Company Number: US-ORGANON-O2303USA002010

PATIENT
  Age: 14 Year
  Sex: Female
  Weight: 90.75 kg

DRUGS (1)
  1. NEXPLANON [Suspect]
     Active Substance: ETONOGESTREL
     Indication: Contraception
     Dosage: 1 IMPLANT 68 MG ONCE
     Route: 058
     Dates: start: 201710, end: 20180504

REACTIONS (3)
  - Heavy menstrual bleeding [Not Recovered/Not Resolved]
  - Viral pharyngitis [Unknown]
  - Upper respiratory tract infection [Unknown]

NARRATIVE: CASE EVENT DATE: 20171101
